FAERS Safety Report 21335999 (Version 1)
Quarter: 2022Q3

REPORT INFORMATION
  Report Type: Spontaneous
  Country: US (occurrence: None)
  Receive Date: 20220914
  Receipt Date: 20220914
  Transmission Date: 20221026
  Serious: Yes (Other)
  Sender: FDA-Public Use
  Company Number: None

PATIENT

DRUGS (1)
  1. TETRAHYDROCANNABINOL UNSPECIFIED\HERBALS [Suspect]
     Active Substance: HERBALS\TETRAHYDROCANNABINOL UNSPECIFIED

REACTIONS (11)
  - Illness [None]
  - Somnolence [None]
  - Thirst [None]
  - Dry eye [None]
  - Nausea [None]
  - Vomiting [None]
  - Loss of consciousness [None]
  - Fall [None]
  - Hypoaesthesia [None]
  - Near death experience [None]
  - Substance use [None]

NARRATIVE: CASE EVENT DATE: 20211115
